FAERS Safety Report 15034719 (Version 1)
Quarter: 2018Q2

REPORT INFORMATION
  Report Type: Spontaneous
  Country: RU (occurrence: RU)
  Receive Date: 20180620
  Receipt Date: 20180620
  Transmission Date: 20180711
  Serious: Yes (Other)
  Sender: FDA-Public Use
  Company Number: RU-ROCHE-2141272

PATIENT
  Age: 34 Year
  Sex: Female

DRUGS (6)
  1. OBINUTUZUMAB. [Suspect]
     Active Substance: OBINUTUZUMAB
     Dosage: OBINUTUZUMAB + DHAP
     Route: 065
     Dates: start: 20180327, end: 2018
  2. OBINUTUZUMAB. [Suspect]
     Active Substance: OBINUTUZUMAB
     Dosage: OBINUTUZUMAB + DHAP
     Route: 065
     Dates: start: 2018, end: 2018
  3. MABTHERA [Suspect]
     Active Substance: RITUXIMAB
     Indication: B-CELL LYMPHOMA
     Dosage: 6 COURSES ON THE SCHEME R-CHOP
     Route: 065
     Dates: start: 2016, end: 201611
  4. MABTHERA [Suspect]
     Active Substance: RITUXIMAB
     Dosage: 2 COURSES ON THE SCHEME R-B
     Route: 065
     Dates: start: 2017
  5. OBINUTUZUMAB. [Suspect]
     Active Substance: OBINUTUZUMAB
     Indication: B-CELL LYMPHOMA
     Dosage: OBINUTUZUMAB (1,8,15 DAYS) + CHOP (1 DAY)
     Route: 065
     Dates: start: 20180228
  6. OBINUTUZUMAB. [Suspect]
     Active Substance: OBINUTUZUMAB
     Dosage: OBINUTUZUMAB + DHAP
     Route: 065
     Dates: start: 20180424, end: 2018

REACTIONS (6)
  - Hypoproteinaemia [Recovered/Resolved]
  - Leukopenia [Recovered/Resolved]
  - Tubulointerstitial nephritis [Recovered/Resolved]
  - Anaemia [Recovered/Resolved]
  - Febrile neutropenia [Recovered/Resolved]
  - Thrombocytopenia [Recovered/Resolved]

NARRATIVE: CASE EVENT DATE: 201803
